FAERS Safety Report 17899793 (Version 1)
Quarter: 2020Q2

REPORT INFORMATION
  Report Type: Spontaneous
  Country: US (occurrence: US)
  Receive Date: 20200615
  Receipt Date: 20200615
  Transmission Date: 20200714
  Serious: Yes (Disabling)
  Sender: FDA-Public Use
  Company Number: None

PATIENT
  Age: 26 Year
  Sex: Male
  Weight: 61.2 kg

DRUGS (5)
  1. ISOTRETINION CAPSULES, USP [Suspect]
     Active Substance: ISOTRETINOIN
     Indication: ACNE
     Dosage: ?          QUANTITY:1 CAPSULE(S);?
     Route: 048
     Dates: start: 20171114, end: 20180616
  2. PHARMA GABA [Concomitant]
  3. VITAMIN B12 [Concomitant]
     Active Substance: CYANOCOBALAMIN
  4. VITAMIN D3 [Concomitant]
     Active Substance: CHOLECALCIFEROL
  5. ASHWAGANDHA [Concomitant]
     Active Substance: HERBALS

REACTIONS (6)
  - Sexual dysfunction [None]
  - Genital paraesthesia [None]
  - Orgasmic sensation decreased [None]
  - Blood oestrogen increased [None]
  - Erectile dysfunction [None]
  - Loss of libido [None]

NARRATIVE: CASE EVENT DATE: 20180119
